FAERS Safety Report 16323904 (Version 2)
Quarter: 2019Q3

REPORT INFORMATION
  Report Type: Spontaneous
  Country: IT (occurrence: IT)
  Receive Date: 20190517
  Receipt Date: 20190703
  Transmission Date: 20191004
  Serious: Yes (Other)
  Sender: FDA-Public Use
  Company Number: IT-ACCORD-118124

PATIENT
  Age: 41 Year
  Sex: Female
  Weight: 65 kg

DRUGS (5)
  1. LEVOLEUCOVORIN. [Concomitant]
     Active Substance: LEVOLEUCOVORIN
     Indication: ADENOCARCINOMA GASTRIC
     Route: 042
     Dates: start: 20180514, end: 20181112
  2. OXALIPLATIN. [Suspect]
     Active Substance: OXALIPLATIN
     Indication: ADENOCARCINOMA GASTRIC
     Route: 042
     Dates: start: 20180514
  3. FLUOROURACIL. [Suspect]
     Active Substance: FLUOROURACIL
     Indication: ADENOCARCINOMA GASTRIC
     Dosage: ALSO RECEIVED 544 MG 29-OCT-2018 TO 12-NOV-2018,712 MG FROM 14-MAY-2018 TO 14-MAY-2018
     Route: 042
     Dates: start: 20180514
  4. HERCEPTIN [Suspect]
     Active Substance: TRASTUZUMAB
     Indication: ADENOCARCINOMA GASTRIC
     Route: 042
     Dates: start: 20180611
  5. DOCETAXEL. [Suspect]
     Active Substance: DOCETAXEL
     Indication: ADENOCARCINOMA GASTRIC
     Route: 042
     Dates: start: 20180514

REACTIONS (10)
  - Dyspnoea [Recovering/Resolving]
  - Feeling hot [Recovering/Resolving]
  - Pyrexia [Recovering/Resolving]
  - Diarrhoea [Recovering/Resolving]
  - Thrombocytopenia [Recovering/Resolving]
  - Erythema [Recovering/Resolving]
  - Malaise [Recovering/Resolving]
  - Influenza [Recovering/Resolving]
  - Asthenia [Recovering/Resolving]
  - Bronchostenosis [Recovering/Resolving]

NARRATIVE: CASE EVENT DATE: 20180514
